FAERS Safety Report 15434651 (Version 1)
Quarter: 2018Q3

REPORT INFORMATION
  Report Type: Spontaneous
  Country: MK (occurrence: MK)
  Receive Date: 20180927
  Receipt Date: 20180927
  Transmission Date: 20181010
  Serious: Yes (Other)
  Sender: FDA-Public Use
  Company Number: MK-BAYER-2018-180066

PATIENT
  Age: 55 Year
  Sex: Male

DRUGS (1)
  1. ULTRAVIST [Suspect]
     Active Substance: IOPROMIDE
     Indication: COMPUTERISED TOMOGRAM
     Dosage: 60 ML, ONCE
     Route: 042
     Dates: start: 20180921, end: 20180921

REACTIONS (5)
  - Choking [None]
  - Throat tightness [None]
  - Nausea [None]
  - Cough [None]
  - Vomiting [None]

NARRATIVE: CASE EVENT DATE: 20180921
